FAERS Safety Report 20197019 (Version 3)
Quarter: 2022Q1

REPORT INFORMATION
  Report Type: Spontaneous
  Country: US (occurrence: US)
  Receive Date: 20211217
  Receipt Date: 20220107
  Transmission Date: 20220424
  Serious: No
  Sender: FDA-Public Use
  Company Number: US-STRONGBRIDGE BIOPHARMA-2021-STR-000412

PATIENT
  Age: 62 Year
  Sex: Female

DRUGS (2)
  1. KEVEYIS [Suspect]
     Active Substance: DICHLORPHENAMIDE
     Indication: Familial periodic paralysis
     Dosage: UNK
     Route: 048
     Dates: start: 20170428
  2. KEVEYIS [Suspect]
     Active Substance: DICHLORPHENAMIDE
     Dosage: 75 MG, BID
     Route: 048

REACTIONS (10)
  - Nasopharyngitis [Recovering/Resolving]
  - Suspected COVID-19 [Unknown]
  - Decreased appetite [Unknown]
  - Ageusia [Unknown]
  - Anosmia [Unknown]
  - Pain [Unknown]
  - Hypoaesthesia [Unknown]
  - Diarrhoea [Unknown]
  - Nausea [Recovering/Resolving]
  - Wrong technique in product usage process [Unknown]

NARRATIVE: CASE EVENT DATE: 20211201
